FAERS Safety Report 9674698 (Version 1)
Quarter: 2013Q4

REPORT INFORMATION
  Report Type: Spontaneous
  Country: US (occurrence: None)
  Receive Date: 20131106
  Receipt Date: 20131106
  Transmission Date: 20140711
  Serious: No
  Sender: FDA-Public Use
  Company Number: None

PATIENT
  Age: 52 Year
  Sex: Female
  Weight: 56.7 kg

DRUGS (1)
  1. ALBUTEROL SULFATE [Suspect]
     Indication: BRONCHIAL HYPERREACTIVITY
     Dosage: ONE VILE EVERY 6 HRS TWICE DAILY INHALATION
     Route: 055
     Dates: start: 20131001, end: 20131031

REACTIONS (2)
  - Lip blister [None]
  - Cough [None]
